FAERS Safety Report 7300675-3 (Version None)
Quarter: 2011Q1

REPORT INFORMATION
  Report Type: 
  Country: None (occurrence: None)
  Receive Date: 20110207
  Receipt Date: 20110131
  Transmission Date: 20110831
  Serious: Yes (Disabling)
  Sender: FDA-Public Use
  Company Number: OSCN-NO-1102L-0048

PATIENT
  Age: 66 Year
  Sex: Female

DRUGS (1)
  1. OMNISCAN [Suspect]
     Indication: PRODUCT USED FOR UNKNOWN INDICATION
     Dosage: SINGLE DOSE
     Dates: start: 20030201, end: 20030201

REACTIONS (2)
  - INTESTINAL ISCHAEMIA [None]
  - NEPHROGENIC SYSTEMIC FIBROSIS [None]
